FAERS Safety Report 8004529-9 (Version None)
Quarter: 2011Q4

REPORT INFORMATION
  Report Type: 
  Country: None (occurrence: None)
  Receive Date: 20111221
  Receipt Date: 20111221
  Transmission Date: 20120403
  Serious: No
  Sender: FDA-Public Use
  Company Number: None

PATIENT
  Age: 51 Year
  Sex: Female

DRUGS (1)
  1. LEXAPRO [Suspect]
     Indication: BODY DYSMORPHIC DISORDER
     Dosage: 10MG PO QD
     Dates: start: 20110507

REACTIONS (2)
  - SKIN LESION [None]
  - SKIN HYPERPIGMENTATION [None]
